FAERS Safety Report 10251936 (Version 1)
Quarter: 2014Q2

REPORT INFORMATION
  Report Type: Spontaneous
  Country: GB (occurrence: GB)
  Receive Date: 20140623
  Receipt Date: 20140623
  Transmission Date: 20141212
  Serious: Yes (Life-Threatening)
  Sender: FDA-Public Use
  Company Number: 2014SP003275

PATIENT
  Age: 69 Year
  Sex: Male

DRUGS (11)
  1. CISPLATIN [Suspect]
     Indication: GASTRIC CANCER
     Route: 042
     Dates: start: 20140521
  2. CISPLATIN [Suspect]
     Indication: GASTRIC CANCER
     Route: 042
     Dates: start: 20130703
  3. EPIRUBICIN [Suspect]
     Indication: GASTRIC CANCER
     Route: 042
     Dates: start: 20140521
  4. EPIRUBICIN [Suspect]
     Indication: GASTRIC CANCER
     Route: 042
     Dates: start: 20130703
  5. CAPECITABINE [Suspect]
     Indication: GASTRIC CANCER
     Route: 048
     Dates: start: 20140521
  6. CAPECITABINE [Suspect]
     Indication: GASTRIC CANCER
     Route: 048
     Dates: start: 20130703
  7. BEVACIZUMAB [Suspect]
     Route: 042
     Dates: start: 20140521
  8. BEVACIZUMAB [Suspect]
     Route: 042
     Dates: start: 20130703
  9. AMLODIPINE [Concomitant]
     Route: 048
  10. BENDROFLUAZIDE [Concomitant]
     Route: 048
  11. SIMVASTATIN [Concomitant]
     Route: 048

REACTIONS (1)
  - Hypokalaemia [Recovered/Resolved]
